FAERS Safety Report 17768890 (Version 3)
Quarter: 2020Q3

REPORT INFORMATION
  Report Type: Spontaneous
  Country: BR (occurrence: BR)
  Receive Date: 20200512
  Receipt Date: 20200720
  Transmission Date: 20201102
  Serious: Yes (Other)
  Sender: FDA-Public Use
  Company Number: BR-SA-2020SA105686

PATIENT

DRUGS (4)
  1. APIDRA [Suspect]
     Active Substance: INSULIN GLULISINE
     Dosage: 4?5 UNITS
     Dates: start: 20200703
  2. BASAGLAR [Concomitant]
     Active Substance: INSULIN GLARGINE
     Route: 065
  3. BASAGLAR [Concomitant]
     Active Substance: INSULIN GLARGINE
     Dosage: 27 IU
     Route: 065
  4. APIDRA [Suspect]
     Active Substance: INSULIN GLULISINE
     Indication: DIABETES MELLITUS
     Dosage: 7 IU, QD (LUNCH TIME)
     Route: 065

REACTIONS (20)
  - Impaired gastric emptying [Unknown]
  - Feeling hot [Unknown]
  - Dyspnoea [Unknown]
  - Dizziness [Recovered/Resolved]
  - Illness [Unknown]
  - Fluid retention [Unknown]
  - Blood glucose decreased [Unknown]
  - Fall [Unknown]
  - Vomiting [Recovered/Resolved]
  - Asthenia [Unknown]
  - Swelling [Unknown]
  - Weight increased [Unknown]
  - Blood glucose increased [Recovered/Resolved]
  - Syncope [Unknown]
  - Decreased appetite [Unknown]
  - Thyroid disorder [Unknown]
  - Labyrinthitis [Recovered/Resolved]
  - Hyperglycaemia [Unknown]
  - Blood glucose fluctuation [Unknown]
  - Dyspepsia [Unknown]

NARRATIVE: CASE EVENT DATE: 20200421
